FAERS Safety Report 23274437 (Version 1)
Quarter: 2023Q4

REPORT INFORMATION
  Report Type: Spontaneous
  Country: NL (occurrence: NL)
  Receive Date: 20231208
  Receipt Date: 20231208
  Transmission Date: 20240109
  Serious: Yes (Other)
  Sender: FDA-Public Use
  Company Number: None

PATIENT
  Age: 54 Year
  Sex: Female
  Weight: 97 kg

DRUGS (15)
  1. STELARA [Suspect]
     Active Substance: USTEKINUMAB
     Indication: Crohn^s disease
     Dosage: 520 MG EENMALIG
     Route: 042
     Dates: start: 20231004
  2. INSULIN ASPART [Concomitant]
     Active Substance: INSULIN ASPART
     Dosage: INJECTIEVLOEISTOF, 100 EENHEDEN/ML (EENHEDEN PER MILLILITER)
  3. MICONAZOLE [Concomitant]
     Active Substance: MICONAZOLE
     Dosage: CREME, 20 MG/G (MILLIGRAM PER GRAM)
  4. CYANOCOBALAMIN [Concomitant]
     Active Substance: CYANOCOBALAMIN
     Dosage: TABLET, 1000 UG (MICROGRAM)
  5. PANTOPRAZOLE [Concomitant]
     Active Substance: PANTOPRAZOLE
     Dosage: MAAGSAPRESISTENTE TABLET, 40 MG (MILLIGRAM)
  6. BETADINE [Concomitant]
     Active Substance: POVIDONE-IODINE
     Dosage: SHAMPOO, 75 MG/ML (MILLIGRAM PER MILLILITER)
  7. RESORCINOL [Concomitant]
     Active Substance: RESORCINOL
     Dosage: CREME, 150 MG/G (MILLIGRAM PER GRAM)
  8. DESLORATADINE [Concomitant]
     Active Substance: DESLORATADINE
     Dosage: TABLET, 5 MG (MILLIGRAM)
  9. ALBUTEROL [Concomitant]
     Active Substance: ALBUTEROL
     Dosage: AEROSOL, 100 UG/DOSIS (MICROGRAM PER DOSIS)
  10. SPIRONOLACTONE [Concomitant]
     Active Substance: SPIRONOLACTONE
     Dosage: TABLET, 25 MG (MILLIGRAM)
  11. BISOPROLOL [Concomitant]
     Active Substance: BISOPROLOL\BISOPROLOL FUMARATE
     Dosage: TABLET, 1,25 MG (MILLIGRAM)
  12. DAPAGLIFLOZIN [Concomitant]
     Active Substance: DAPAGLIFLOZIN
     Dosage: TABLET, 10 MG (MILLIGRAM)
  13. ISOPHANE INSULIN [Concomitant]
     Active Substance: INSULIN NOS
     Dosage: SUSPENSIE VOOR INJECTIE, 100 IE/ML (EENHEDEN PER MILLILITER)
  14. ENTRESTO [Concomitant]
     Active Substance: SACUBITRIL\VALSARTAN
     Dosage: TABLET, 24/26 MG (MILLIGRAM)
  15. MOMETASONE [Concomitant]
     Active Substance: MOMETASONE
     Dosage: ZALF, 1 MG/G (MILLIGRAM PER GRAM)

REACTIONS (1)
  - Vitreous detachment [Not Recovered/Not Resolved]
